FAERS Safety Report 9200826 (Version 1)
Quarter: 2013Q1

REPORT INFORMATION
  Report Type: Spontaneous
  Country: US (occurrence: None)
  Receive Date: 20130328
  Receipt Date: 20130328
  Transmission Date: 20140127
  Serious: Yes (Other)
  Sender: FDA-Public Use
  Company Number: None

PATIENT
  Age: 59 Year
  Sex: Female
  Weight: 80.29 kg

DRUGS (1)
  1. EXEMESTANE 25MG GRE [Suspect]
     Indication: BREAST CANCER METASTATIC
     Route: 048
     Dates: start: 20130308, end: 20130309

REACTIONS (3)
  - Heart rate decreased [None]
  - Chest discomfort [None]
  - Fear [None]
